FAERS Safety Report 21629253 (Version 2)
Quarter: 2022Q4

REPORT INFORMATION
  Report Type: Spontaneous
  Country: JP (occurrence: JP)
  Receive Date: 20221122
  Receipt Date: 20221220
  Transmission Date: 20230112
  Serious: Yes (Hospitalization, Other)
  Sender: FDA-Public Use
  Company Number: JP-MSD-2211JPN001859J

PATIENT
  Age: 77 Year
  Sex: Female

DRUGS (4)
  1. KEYTRUDA [Suspect]
     Active Substance: PEMBROLIZUMAB
     Indication: Renal cancer stage II
     Dosage: 200 MILLIGRAM
     Route: 041
     Dates: start: 20220118, end: 20220226
  2. AXITINIB [Suspect]
     Active Substance: AXITINIB
     Indication: Renal cancer stage II
     Dosage: UNK
     Route: 065
     Dates: start: 20220118, end: 2022
  3. AXITINIB [Suspect]
     Active Substance: AXITINIB
     Dosage: 10 MILLIGRAM
     Route: 065
     Dates: start: 20220216, end: 20220226
  4. AXITINIB [Suspect]
     Active Substance: AXITINIB
     Dosage: 4 MILLIGRAM
     Route: 065
     Dates: start: 20220315, end: 2022

REACTIONS (3)
  - Altered state of consciousness [Recovered/Resolved]
  - Hypothyroidism [Unknown]
  - Hyperammonaemia [Unknown]

NARRATIVE: CASE EVENT DATE: 20220226
